FAERS Safety Report 20595379 (Version 1)
Quarter: 2022Q1

REPORT INFORMATION
  Report Type: Spontaneous
  Country: US (occurrence: None)
  Receive Date: 20220314
  Receipt Date: 20220314
  Transmission Date: 20220423
  Serious: No
  Sender: FDA-Public Use
  Company Number: None

PATIENT
  Sex: Female

DRUGS (1)
  1. COPAXONE [Suspect]
     Active Substance: GLATIRAMER ACETATE
     Indication: Multiple sclerosis
     Dosage: FREQUENCY : 3 TIMES A WEEK;?
     Route: 058
     Dates: start: 202201

REACTIONS (9)
  - Adverse drug reaction [None]
  - Chest discomfort [None]
  - Flushing [None]
  - Erythema [None]
  - Nausea [None]
  - Dizziness [None]
  - Chills [None]
  - Feeling cold [None]
  - Pain [None]
